FAERS Safety Report 5521508-1 (Version None)
Quarter: 2007Q4

REPORT INFORMATION
  Report Type: 
  Country: None (occurrence: None)
  Receive Date: 20071119
  Receipt Date: 20071108
  Transmission Date: 20080405
  Serious: Yes (Hospitalization, Other)
  Sender: FDA-Public Use
  Company Number: JP-PFIZER INC-2007094592

PATIENT
  Age: 70 Year
  Sex: Male

DRUGS (6)
  1. NORVASC [Suspect]
     Indication: HYPERTENSION
     Route: 048
     Dates: start: 20070914, end: 20071012
  2. BLOPRESS [Suspect]
     Indication: HYPERTENSION
     Dosage: DAILY DOSE:12MG-FREQ:DAILY
     Route: 048
  3. BLOPRESS [Suspect]
     Dosage: DAILY DOSE:8MG
     Route: 048
     Dates: start: 20070914, end: 20071012
  4. BLOPRESS [Suspect]
     Route: 048
  5. ASPIRIN [Concomitant]
     Dosage: DAILY DOSE:100MG
     Route: 048
  6. VASOLAN [Concomitant]
     Dosage: DAILY DOSE:40MG
     Route: 048

REACTIONS (2)
  - FAECES DISCOLOURED [None]
  - THROMBOCYTOPENIA [None]
